FAERS Safety Report 6138955-X (Version None)
Quarter: 2009Q1

REPORT INFORMATION
  Report Type: 
  Country: None (occurrence: None)
  Receive Date: 20090331
  Receipt Date: 20090302
  Transmission Date: 20090719
  Serious: Yes (Hospitalization, Other)
  Sender: FDA-Public Use
  Company Number: HN-ABBOTT-09R-074-0565322-00

PATIENT
  Sex: Male

DRUGS (1)
  1. BERACTANT [Suspect]
     Indication: NEONATAL RESPIRATORY DISTRESS SYNDROME
     Dosage: INJECTED INTO THE ENDOTRACHEAL TUBE
     Route: 050

REACTIONS (6)
  - ATELECTASIS [None]
  - BRONCHOPULMONARY DYSPLASIA [None]
  - ENDOTRACHEAL INTUBATION COMPLICATION [None]
  - LUNG INFILTRATION [None]
  - NEONATAL RESPIRATORY DISTRESS SYNDROME [None]
  - PULMONARY HAEMORRHAGE [None]
